FAERS Safety Report 17898775 (Version 2)
Quarter: 2020Q2

REPORT INFORMATION
  Report Type: Report from Study
  Country: US (occurrence: US)
  Receive Date: 20200615
  Receipt Date: 20200623
  Transmission Date: 20200714
  Serious: Yes (Death, Hospitalization)
  Sender: FDA-Public Use
  Company Number: US-ACTELION-A-NJ2017-161206

PATIENT
  Age: 69 Year
  Sex: Female
  Weight: 66.21 kg

DRUGS (4)
  1. UPTRAVI [Suspect]
     Active Substance: SELEXIPAG
     Dosage: 600 MCG, BID
     Route: 048
  2. ADEMPAS [Concomitant]
     Active Substance: RIOCIGUAT
  3. UPTRAVI [Suspect]
     Active Substance: SELEXIPAG
     Indication: PULMONARY HYPERTENSION
     Dosage: 400 MCG, BID
     Route: 048
     Dates: start: 20160301
  4. OPSUMIT [Suspect]
     Active Substance: MACITENTAN
     Indication: PULMONARY HYPERTENSION
     Dosage: 10 MG, QD
     Route: 048

REACTIONS (19)
  - Pulmonary hypertension [Unknown]
  - Joint swelling [Unknown]
  - Cough [Unknown]
  - Death [Fatal]
  - Weight decreased [Unknown]
  - Diarrhoea [Unknown]
  - Feeling hot [Recovering/Resolving]
  - Wheezing [Unknown]
  - Unevaluable event [Unknown]
  - Pericardial effusion [Unknown]
  - Dizziness [Unknown]
  - Syncope [Unknown]
  - Oedema peripheral [Unknown]
  - Dizziness postural [Unknown]
  - Dyspnoea [Not Recovered/Not Resolved]
  - Fluid retention [Unknown]
  - Chest pain [Unknown]
  - Decreased appetite [Unknown]
  - Somnolence [Recovering/Resolving]

NARRATIVE: CASE EVENT DATE: 2017
